FAERS Safety Report 25111331 (Version 1)
Quarter: 2025Q1

REPORT INFORMATION
  Report Type: Report from Study
  Country: US (occurrence: US)
  Receive Date: 20250324
  Receipt Date: 20250324
  Transmission Date: 20250409
  Serious: No
  Sender: TAKEDA
  Company Number: US-BAXTER-2013BAX030302

PATIENT
  Age: 64 Year
  Sex: Female
  Weight: 86 kg

DRUGS (21)
  1. HUMAN IMMUNOGLOBULIN G [Suspect]
     Active Substance: HUMAN IMMUNOGLOBULIN G
     Indication: Immunodeficiency common variable
     Dosage: UNK UNK, Q4WEEKS
     Dates: start: 20130724
  2. HYQVIA [Suspect]
     Active Substance: HUMAN IMMUNOGLOBULIN G\HYALURONIDASE (HUMAN RECOMBINANT)
     Indication: Immunodeficiency common variable
     Dosage: 40 GRAM, Q4WEEKS
  3. CYMBALTA [Concomitant]
     Active Substance: DULOXETINE HYDROCHLORIDE
     Indication: Product used for unknown indication
  4. TYLENOL [Concomitant]
     Active Substance: ACETAMINOPHEN
  5. PREDNISONE [Concomitant]
     Active Substance: PREDNISONE
     Indication: Premedication
  6. ACETAMINOPHEN [Concomitant]
     Active Substance: ACETAMINOPHEN
  7. EPINEPHRINE [Concomitant]
     Active Substance: EPINEPHRINE
  8. SODIUM CHLORIDE [Concomitant]
     Active Substance: SODIUM CHLORIDE
  9. MELOXICAM [Concomitant]
     Active Substance: MELOXICAM
  10. ALPRAZOLAM [Concomitant]
     Active Substance: ALPRAZOLAM
  11. CLONIDINE HYDROCHLORIDE [Concomitant]
     Active Substance: CLONIDINE HYDROCHLORIDE
  12. ARMOUR THYROID [Concomitant]
     Active Substance: THYROID, PORCINE
  13. TRAZODONE HCL [Concomitant]
     Active Substance: TRAZODONE HYDROCHLORIDE
  14. IPRATROPIUM BROMIDE [Concomitant]
     Active Substance: IPRATROPIUM BROMIDE
  15. ATORVASTATIN CALCIUM [Concomitant]
     Active Substance: ATORVASTATIN CALCIUM
  16. MONTELUKAST SODIUM [Concomitant]
     Active Substance: MONTELUKAST SODIUM
  17. DIPHENHYDRAMINE HYDROCHLORIDE [Concomitant]
     Active Substance: DIPHENHYDRAMINE HYDROCHLORIDE
  18. Lmx [Concomitant]
  19. MOUNJARO [Concomitant]
     Active Substance: TIRZEPATIDE
  20. ESCITALOPRAM OXALATE [Concomitant]
     Active Substance: ESCITALOPRAM OXALATE
  21. Centrum adults [Concomitant]

REACTIONS (5)
  - Pain in extremity [Recovered/Resolved]
  - Inappropriate schedule of product administration [Unknown]
  - Injection site pruritus [Unknown]
  - Muscle spasms [Unknown]
  - Urticaria [Unknown]

NARRATIVE: CASE EVENT DATE: 20130724
